FAERS Safety Report 6559106-3 (Version None)
Quarter: 2010Q1

REPORT INFORMATION
  Report Type: 
  Country: None (occurrence: None)
  Receive Date: 20100129
  Receipt Date: 20100125
  Transmission Date: 20100710
  Serious: Yes (Other)
  Sender: FDA-Public Use
  Company Number: ES-BAYER-201013192GPV

PATIENT
  Age: 85 Year
  Sex: Male

DRUGS (8)
  1. ACTIRA [Suspect]
     Indication: CHRONIC OBSTRUCTIVE PULMONARY DISEASE
     Route: 048
     Dates: start: 20081114, end: 20081220
  2. AMIODARONE HCL [Interacting]
     Route: 048
     Dates: start: 20040101, end: 20081123
  3. SINTROM [Concomitant]
     Dosage: SEGUN INR
     Route: 048
     Dates: start: 20040101
  4. RIVOTRIL [Concomitant]
     Dosage: TOTAL DAILY DOSE: 0.5 MG  UNIT DOSE: 0.5 MG
     Route: 048
     Dates: start: 20040616
  5. LORAZEPAM [Concomitant]
     Dosage: TOTAL DAILY DOSE: 1 MG  UNIT DOSE: 1 MG
     Route: 048
     Dates: start: 20080229
  6. AXURA [Concomitant]
     Dosage: UNIT DOSE: 10 MG
     Route: 048
     Dates: start: 20051201
  7. ARICEPT FLAS [Concomitant]
     Dosage: TOTAL DAILY DOSE: 5 MG  UNIT DOSE: 5 MG
     Route: 048
     Dates: start: 20080214
  8. PULMICORT [Concomitant]
     Dosage: UNIT DOSE: 0.25 MG/ML
     Route: 055
     Dates: start: 20051201

REACTIONS (2)
  - ATRIAL FIBRILLATION [None]
  - HICCUPS [None]
